FAERS Safety Report 5052821-2 (Version None)
Quarter: 2006Q3

REPORT INFORMATION
  Report Type: 
  Country: None (occurrence: None)
  Receive Date: 20060713
  Receipt Date: 20060713
  Transmission Date: 20061208
  Serious: Yes (Life-Threatening, Hospitalization)
  Sender: FDA-Public Use
  Company Number: None

PATIENT
  Sex: Male

DRUGS (7)
  1. SARGRAMOSTIM 250 MICROGRAMS BERLEX [Suspect]
     Indication: DRUG THERAPY
     Dosage: 250 MICROGRAMS 2 SINGLE DOSES IM
     Route: 030
     Dates: start: 20050819, end: 20050919
  2. KALETRA [Concomitant]
  3. TENOFOVIR [Concomitant]
  4. REYATAZ [Concomitant]
  5. SYNTHROID [Concomitant]
  6. DILANTIN [Concomitant]
  7. PROPRANOLOL [Concomitant]

REACTIONS (3)
  - ASTHENIA [None]
  - HYPOKALAEMIA [None]
  - RENAL FAILURE [None]
